FAERS Safety Report 9768299 (Version 2)
Quarter: 2013Q4

REPORT INFORMATION
  Report Type: Report from Study
  Country: US (occurrence: US)
  Receive Date: 20131217
  Receipt Date: 20131217
  Transmission Date: 20140711
  Serious: Yes (Hospitalization, Other)
  Sender: FDA-Public Use
  Company Number: US-TAKEDA-TPA2011A08282

PATIENT
  Age: 69 Year
  Sex: Male
  Weight: 72.8 kg

DRUGS (19)
  1. BLINDED ALLOPURINOL [Suspect]
     Indication: HYPERURICAEMIA
     Dosage: UNK, QD
     Route: 048
     Dates: start: 20101222
  2. BLINDED FEBUXOSTAT [Suspect]
     Indication: HYPERURICAEMIA
     Dosage: UNK, QD
     Route: 048
     Dates: start: 20101222
  3. COLCHICINE [Concomitant]
     Indication: GOUT
     Dosage: 0.6 MG, QD
     Dates: start: 20110323
  4. LOVAZA [Concomitant]
     Indication: HYPERLIPIDAEMIA
     Dosage: 1 DF, QD
     Route: 048
     Dates: start: 20100706, end: 20110911
  5. AMLODIPINE [Concomitant]
     Indication: HYPERTENSION
     Dosage: 5 MG, QD
     Route: 048
     Dates: start: 20101110, end: 20110911
  6. KETOCONAZOLE 2% [Concomitant]
     Indication: ONYCHOMYCOSIS
     Dosage: 1 APPLICATION BID
     Route: 061
     Dates: start: 20100827, end: 20110911
  7. MECLIZINE [Concomitant]
     Indication: DIZZINESS
     Dosage: 12.5 MG, PRN
     Route: 048
     Dates: start: 2009, end: 20110911
  8. FINASTERIDE [Concomitant]
     Indication: BENIGN PROSTATIC HYPERPLASIA
     Dosage: 5 MG, QD
     Route: 048
     Dates: start: 2009
  9. COREG CR [Concomitant]
     Indication: HYPERTENSION
     Dosage: 25 MG, QD
     Route: 048
     Dates: start: 2009
  10. ALPHAGAN 1% [Concomitant]
     Indication: DRY EYE
     Dosage: 1 GTT, QHS
     Route: 031
     Dates: start: 2009, end: 20110911
  11. NOVOLOG [Concomitant]
     Indication: TYPE 2 DIABETES MELLITUS
     Dosage: 16 IU, TID
     Route: 058
     Dates: start: 20110315
  12. TRAMADOL [Concomitant]
     Indication: PAIN IN EXTREMITY
     Dosage: 50 MG, PRN
     Route: 048
     Dates: start: 2009
  13. TEMAZEPAM [Concomitant]
     Indication: INSOMNIA
     Dosage: 15 MG, QD
     Route: 048
     Dates: start: 2009
  14. FUROSEMIDE [Concomitant]
     Indication: HYPERTENSION
     Dosage: 20 MG, QD
     Route: 048
     Dates: start: 2009
  15. ROSUVASTATIN CALCIUM [Concomitant]
     Indication: HYPERLIPIDAEMIA
     Dosage: 5 MG, QD
     Route: 048
     Dates: start: 20100706, end: 20111111
  16. ESCITALOPRAM [Concomitant]
     Indication: DEPRESSION
     Dosage: 10 MG, QD
     Route: 048
     Dates: start: 2009
  17. VALSARTAN [Concomitant]
     Indication: HYPERTENSION
     Dosage: 80 MG, BID
     Route: 048
     Dates: start: 2009, end: 20110911
  18. ISOSORBIDE [Concomitant]
     Indication: HYPERTENSION
     Dosage: 30 MG, QD
     Route: 048
     Dates: start: 2009, end: 20110911
  19. ASPIRIN [Concomitant]
     Indication: PROPHYLAXIS
     Dosage: 81 MG, QD
     Route: 048
     Dates: start: 2009

REACTIONS (5)
  - Fall [Recovered/Resolved]
  - Haemorrhage intracranial [Recovered/Resolved]
  - Head injury [Recovered/Resolved]
  - Rib fracture [Recovered/Resolved]
  - Dizziness [Recovered/Resolved]
